FAERS Safety Report 5024824-5 (Version None)
Quarter: 2006Q2

REPORT INFORMATION
  Report Type: 
  Country: None (occurrence: None)
  Receive Date: 20060607
  Receipt Date: 20060525
  Transmission Date: 20061013
  Serious: Yes (Hospitalization, Other)
  Sender: FDA-Public Use
  Company Number: HQWYE731310APR06

PATIENT
  Age: 52 Year
  Sex: Male

DRUGS (8)
  1. RAPAMUNE [Suspect]
     Indication: PROPHYLAXIS AGAINST TRANSPLANT REJECTION
     Dosage: 8 MG 1X PER 1 DAY ORAL
     Route: 048
     Dates: start: 20051124, end: 20060408
  2. MYCOPHENOLATE MOFETIL (MYCOPHENOLATE MODETIL) [Concomitant]
  3. PREDNISONE TAB [Concomitant]
  4. INSULIN [Concomitant]
  5. CYANOCOBALAMIN [Concomitant]
  6. OMEPRAZOLE [Concomitant]
  7. ASPIRIN [Concomitant]
  8. ACETAMINOPHEN [Concomitant]

REACTIONS (2)
  - HYPERLIPIDAEMIA [None]
  - LIVER TRANSPLANT REJECTION [None]
